FAERS Safety Report 18300537 (Version 1)
Quarter: 2020Q3

REPORT INFORMATION
  Report Type: Spontaneous
  Country: US (occurrence: US)
  Receive Date: 20200923
  Receipt Date: 20200923
  Transmission Date: 20201103
  Serious: No
  Sender: FDA-Public Use
  Company Number: None

PATIENT
  Age: 26 Year
  Sex: Female

DRUGS (1)
  1. OLANZAPINE (OLANZAPINE 405MG/KIT INJ, SUSP, SA) [Suspect]
     Active Substance: OLANZAPINE PAMOATE
     Dosage: ?          OTHER STRENGTH:405MG/KIT;?
     Route: 030
     Dates: start: 20190626, end: 20200701

REACTIONS (2)
  - Confusional state [None]
  - Delirium [None]

NARRATIVE: CASE EVENT DATE: 20200701
